FAERS Safety Report 25948890 (Version 1)
Quarter: 2025Q4

REPORT INFORMATION
  Report Type: Spontaneous
  Country: CN (occurrence: CN)
  Receive Date: 20251022
  Receipt Date: 20251022
  Transmission Date: 20260117
  Serious: Yes (Hospitalization, Other)
  Sender: MERCK SHARP & DOHME LLC
  Company Number: CN-009507513-2338287

PATIENT
  Age: 72 Year
  Sex: Male
  Weight: 80 kg

DRUGS (14)
  1. KEYTRUDA [Suspect]
     Active Substance: PEMBROLIZUMAB
     Indication: Lung squamous cell carcinoma stage IV
     Dosage: 200MG, EVERY 3 WEEKS
     Route: 041
     Dates: start: 20250321, end: 20250321
  2. KEYTRUDA [Suspect]
     Active Substance: PEMBROLIZUMAB
     Indication: Lung squamous cell carcinoma stage IV
     Dosage: 200MG, EVERY 3 WEEKS
     Route: 041
     Dates: start: 20250412, end: 20250412
  3. KEYTRUDA [Suspect]
     Active Substance: PEMBROLIZUMAB
     Indication: Lung squamous cell carcinoma stage IV
     Dosage: 200MG, EVERY 3 WEEKS
     Route: 041
     Dates: start: 20250504, end: 20250504
  4. KEYTRUDA [Suspect]
     Active Substance: PEMBROLIZUMAB
     Indication: Lung squamous cell carcinoma stage IV
     Dosage: 200MG, EVERY 3 WEEKS
     Route: 041
     Dates: start: 20250527, end: 20250527
  5. ETOPOSIDE [Suspect]
     Active Substance: ETOPOSIDE
     Indication: Lung squamous cell carcinoma stage IV
     Dosage: TIME INTERVAL: CYCLICAL: 0.18G, D1-3
     Dates: start: 20250321, end: 20250321
  6. ETOPOSIDE [Suspect]
     Active Substance: ETOPOSIDE
     Indication: Lung squamous cell carcinoma stage IV
     Dosage: TIME INTERVAL: CYCLICAL: 0.18G, D1-3
     Dates: start: 20250412, end: 20250412
  7. ETOPOSIDE [Suspect]
     Active Substance: ETOPOSIDE
     Indication: Lung squamous cell carcinoma stage IV
     Dosage: TIME INTERVAL: CYCLICAL: 0.18G, D1-3
     Dates: start: 20250504, end: 20250504
  8. ETOPOSIDE [Suspect]
     Active Substance: ETOPOSIDE
     Indication: Lung squamous cell carcinoma stage IV
     Dosage: TIME INTERVAL: CYCLICAL: 0.18G, D1-3
     Dates: start: 20250527, end: 20250527
  9. ETOPOSIDE [Suspect]
     Active Substance: ETOPOSIDE
     Indication: Lung squamous cell carcinoma stage IV
     Dosage: 0.16G, EVERY 3 WEEKS
     Route: 041
     Dates: start: 20250713, end: 20250713
  10. CARBOPLATIN [Suspect]
     Active Substance: CARBOPLATIN
     Indication: Lung squamous cell carcinoma stage IV
     Dosage: 400MG (AUC=3), EVERY 3 WEEKS, D1
     Dates: start: 20250321, end: 20250321
  11. CARBOPLATIN [Suspect]
     Active Substance: CARBOPLATIN
     Indication: Lung squamous cell carcinoma stage IV
     Dosage: 400MG (AUC=3), EVERY 3 WEEKS, D1
     Dates: start: 20250412, end: 20250412
  12. CARBOPLATIN [Suspect]
     Active Substance: CARBOPLATIN
     Indication: Lung squamous cell carcinoma stage IV
     Dosage: 400MG (AUC=3), EVERY 3 WEEKS, D1
     Dates: start: 20250504, end: 20250504
  13. CARBOPLATIN [Suspect]
     Active Substance: CARBOPLATIN
     Indication: Lung squamous cell carcinoma stage IV
     Dosage: 250MG (AUC=2), EVERY 3 WEEKS, D1
     Dates: start: 20250527, end: 20250527
  14. CARBOPLATIN [Suspect]
     Active Substance: CARBOPLATIN
     Indication: Lung squamous cell carcinoma stage IV
     Dosage: 250MG (AUC=2), EVERY 3 WEEKS
     Route: 041
     Dates: start: 20250713, end: 20250713

REACTIONS (7)
  - Pulmonary ablation [Recovered/Resolved]
  - Diarrhoea [Recovering/Resolving]
  - Hospitalisation [Recovered/Resolved]
  - Product use in unapproved indication [Unknown]
  - White blood cell count decreased [Recovered/Resolved]
  - Neutrophil count decreased [Recovered/Resolved]
  - Platelet count decreased [Recovered/Resolved]

NARRATIVE: CASE EVENT DATE: 20250101
